FAERS Safety Report 24212386 (Version 2)
Quarter: 2024Q4

REPORT INFORMATION
  Report Type: Spontaneous
  Country: US (occurrence: US)
  Receive Date: 20240815
  Receipt Date: 20241001
  Transmission Date: 20250114
  Serious: No
  Sender: BRISTOL MYERS SQUIBB
  Company Number: US-BRISTOL-MYERS SQUIBB COMPANY-2024-128974

PATIENT
  Age: 58 Year
  Sex: Male

DRUGS (1)
  1. LENALIDOMIDE [Suspect]
     Active Substance: LENALIDOMIDE
     Indication: Plasma cell myeloma
     Dosage: FREQUENCY-DAILY FOR 21 DAYS
     Route: 048
     Dates: start: 20240730

REACTIONS (4)
  - Headache [Unknown]
  - Cough [Unknown]
  - Respiratory tract congestion [Unknown]
  - Myalgia [Unknown]

NARRATIVE: CASE EVENT DATE: 20240927
